FAERS Safety Report 18332220 (Version 3)
Quarter: 2020Q4

REPORT INFORMATION
  Report Type: Report from Study
  Country: None (occurrence: US)
  Receive Date: 20201001
  Receipt Date: 20201020
  Transmission Date: 20210113
  Serious: Yes (Hospitalization)
  Sender: FDA-Public Use
  Company Number: US-ABBVIE-20K-163-3582570-00

PATIENT
  Age: 67 Year
  Sex: Female

DRUGS (2)
  1. DUOPA [Suspect]
     Active Substance: CARBIDOPA\LEVODOPA
     Indication: PARKINSON^S DISEASE
     Route: 050
     Dates: start: 20200915, end: 20200926
  2. DUOPA [Suspect]
     Active Substance: CARBIDOPA\LEVODOPA

REACTIONS (8)
  - Back injury [Unknown]
  - Device issue [Unknown]
  - Arthralgia [Unknown]
  - Pneumoperitoneum [Unknown]
  - Fall [Unknown]
  - Pain [Unknown]
  - Hypertension [Unknown]
  - Post procedural complication [Unknown]

NARRATIVE: CASE EVENT DATE: 202009
